FAERS Safety Report 10368886 (Version 1)
Quarter: 2014Q3

REPORT INFORMATION
  Report Type: Spontaneous
  Country: US (occurrence: US)
  Receive Date: 20140807
  Receipt Date: 20140807
  Transmission Date: 20150326
  Serious: No
  Sender: FDA-Public Use
  Company Number: US-ASTRAZENECA-2014SE06596

PATIENT
  Age: 63 Year
  Sex: Female
  Weight: 88.5 kg

DRUGS (7)
  1. TAMOXIFEN [Suspect]
     Active Substance: TAMOXIFEN
     Indication: BREAST CANCER STAGE I
     Route: 048
     Dates: start: 20131011
  2. VITAMIN D [Concomitant]
     Active Substance: CHOLECALCIFEROL
     Indication: ARTHRALGIA
     Route: 048
     Dates: start: 201311
  3. ANASTROZOLE. [Suspect]
     Active Substance: ANASTROZOLE
     Indication: BREAST CANCER
     Dosage: GENERIC
     Route: 048
     Dates: start: 20130615, end: 20130722
  4. CALCIUM [Concomitant]
     Active Substance: CALCIUM
     Indication: ARTHRALGIA
     Route: 048
     Dates: start: 201311
  5. COQ10 [Concomitant]
     Active Substance: UBIDECARENONE
     Indication: ARTHRALGIA
     Route: 048
     Dates: start: 201401
  6. TAMOXIFEN [Suspect]
     Active Substance: TAMOXIFEN
     Indication: BREAST CANCER STAGE I
     Route: 048
  7. IBUPROFEN. [Concomitant]
     Active Substance: IBUPROFEN
     Indication: ARTHRALGIA
     Route: 048
     Dates: start: 2013

REACTIONS (21)
  - Sexual dysfunction [Recovered/Resolved]
  - Urinary incontinence [Recovered/Resolved]
  - Gait disturbance [Not Recovered/Not Resolved]
  - Pain in extremity [Not Recovered/Not Resolved]
  - Arthritis [Recovered/Resolved]
  - Pain [Recovered/Resolved]
  - Musculoskeletal discomfort [Recovered/Resolved]
  - Dysstasia [Not Recovered/Not Resolved]
  - Arthralgia [Recovered/Resolved]
  - Fatigue [Recovered/Resolved]
  - Dyspnoea [Recovered/Resolved]
  - Chills [Recovered/Resolved]
  - Mood swings [Recovered/Resolved]
  - Joint stiffness [Not Recovered/Not Resolved]
  - Arthritis [Unknown]
  - Agitation [Unknown]
  - Adverse event [Unknown]
  - Dysuria [Recovered/Resolved]
  - Insomnia [Not Recovered/Not Resolved]
  - Hot flush [Recovered/Resolved]
  - Headache [Recovered/Resolved]

NARRATIVE: CASE EVENT DATE: 2013
